FAERS Safety Report 17363252 (Version 2)
Quarter: 2020Q2

REPORT INFORMATION
  Report Type: Report from Study
  Country: US (occurrence: US)
  Receive Date: 20200203
  Receipt Date: 20200616
  Transmission Date: 20200713
  Serious: Yes (Other)
  Sender: FDA-Public Use
  Company Number: US-ACTELION-A-NJ2019-191230

PATIENT
  Age: 45 Year
  Sex: Female
  Weight: 126.53 kg

DRUGS (3)
  1. TADALAFIL. [Concomitant]
     Active Substance: TADALAFIL
  2. OXYGEN. [Concomitant]
     Active Substance: OXYGEN
     Dosage: 2 L/MIN
  3. OPSUMIT [Suspect]
     Active Substance: MACITENTAN
     Indication: PULMONARY ARTERIAL HYPERTENSION
     Dosage: 10 MG, QD
     Route: 048

REACTIONS (12)
  - Sinus pain [Unknown]
  - Cyst removal [Unknown]
  - Haemorrhage [Unknown]
  - Fluid retention [Unknown]
  - Female reproductive tract disorder [Unknown]
  - Dizziness [Unknown]
  - Weight increased [Unknown]
  - Productive cough [Unknown]
  - Lymphoedema [Unknown]
  - Peripheral swelling [Unknown]
  - Swelling [Unknown]
  - Headache [Unknown]

NARRATIVE: CASE EVENT DATE: 201905
